FAERS Safety Report 9136048 (Version 1)
Quarter: 2013Q1

REPORT INFORMATION
  Report Type: Spontaneous
  Country: US (occurrence: US)
  Receive Date: 20130304
  Receipt Date: 20130304
  Transmission Date: 20140127
  Serious: No
  Sender: FDA-Public Use
  Company Number: US-ABBOTT-12P-163-0923654-00

PATIENT
  Age: 65 Year
  Sex: Female
  Weight: 65.83 kg

DRUGS (3)
  1. ANDROGEL 1% [Suspect]
     Indication: LIBIDO DECREASED
     Route: 061
     Dates: start: 201112
  2. DHEA [Concomitant]
     Indication: PRODUCT USED FOR UNKNOWN INDICATION
  3. MENOPAUSAL HORMONE REPLACEMENT THERAPY [Concomitant]
     Indication: PRODUCT USED FOR UNKNOWN INDICATION

REACTIONS (2)
  - Off label use [Not Recovered/Not Resolved]
  - Hair growth abnormal [Not Recovered/Not Resolved]
